FAERS Safety Report 15403567 (Version 9)
Quarter: 2019Q3

REPORT INFORMATION
  Report Type: Report from Study
  Country: US (occurrence: US)
  Receive Date: 20180919
  Receipt Date: 20190917
  Transmission Date: 20191004
  Serious: Yes (Other)
  Sender: FDA-Public Use
  Company Number: US-JNJFOC-20180833811

PATIENT
  Sex: Female

DRUGS (14)
  1. HYDROCHLOROTHIAZIDE. [Concomitant]
     Active Substance: HYDROCHLOROTHIAZIDE
  2. ALLOPURINOL. [Concomitant]
     Active Substance: ALLOPURINOL
  3. FLONASE [Concomitant]
     Active Substance: FLUTICASONE PROPIONATE
     Route: 065
  4. PARACETAMOL [Concomitant]
     Active Substance: ACETAMINOPHEN
  5. IMBRUVICA [Suspect]
     Active Substance: IBRUTINIB
     Indication: CHRONIC LYMPHOCYTIC LEUKAEMIA
     Dosage: 420 MG, QD
     Route: 048
     Dates: start: 20180621, end: 2018
  6. IMBRUVICA [Suspect]
     Active Substance: IBRUTINIB
     Dosage: 420 MG, QD
     Route: 048
     Dates: start: 20180703, end: 2018
  7. FOLIC ACID. [Concomitant]
     Active Substance: FOLIC ACID
  8. MULTIVITAMINS [Concomitant]
     Active Substance: VITAMINS
  9. GLYBURIDE. [Concomitant]
     Active Substance: GLYBURIDE
  10. SYNTHROID [Concomitant]
     Active Substance: LEVOTHYROXINE SODIUM
  11. OMEPRAZOLE. [Concomitant]
     Active Substance: OMEPRAZOLE
  12. VENCLEXTA [Suspect]
     Active Substance: VENETOCLAX
     Indication: PRODUCT USED FOR UNKNOWN INDICATION
     Dosage: UNK
     Route: 065
  13. QUINAPRIL. [Concomitant]
     Active Substance: QUINAPRIL
  14. SIMVASTATIN. [Concomitant]
     Active Substance: SIMVASTATIN

REACTIONS (9)
  - Increased tendency to bruise [Unknown]
  - Visual impairment [Unknown]
  - Erythema [Unknown]
  - White blood cell count increased [Recovering/Resolving]
  - Tremor [Unknown]
  - Hypoacusis [Not Recovered/Not Resolved]
  - Ear infection [Unknown]
  - Ear haemorrhage [Recovered/Resolved]
  - Asthenia [Unknown]
